FAERS Safety Report 8157901-0 (Version None)
Quarter: 2012Q1

REPORT INFORMATION
  Report Type: 
  Country: None (occurrence: None)
  Receive Date: 20120222
  Receipt Date: 20120216
  Transmission Date: 20120608
  Serious: Yes (Hospitalization, Other)
  Sender: FDA-Public Use
  Company Number: PHHY2012BR013967

PATIENT
  Age: 58 Year
  Sex: Female

DRUGS (4)
  1. ASPIRIN [Concomitant]
     Dosage: 100 MG
  2. EXFORGE HCT [Suspect]
     Indication: HYPERTENSION
     Dosage: 1 DF, QD(160 MG VALS, 5 MG AMLO AND 12.5 MG HYDRO)
  3. MITOXANTRONE [Concomitant]
     Dosage: 200 MG
  4. PANTOPRAZOLE [Concomitant]
     Dosage: 40 MG

REACTIONS (6)
  - DEPRESSION [None]
  - DYSPNOEA [None]
  - ISCHAEMIA [None]
  - HYPOAESTHESIA [None]
  - ARRHYTHMIA [None]
  - STRESS [None]
